FAERS Safety Report 19986095 (Version 1)
Quarter: 2021Q4

REPORT INFORMATION
  Report Type: Spontaneous
  Country: US (occurrence: US)
  Receive Date: 20211022
  Receipt Date: 20211022
  Transmission Date: 20220303
  Serious: No
  Sender: FDA-Public Use
  Company Number: US-ANIPHARMA-2021-US-014329

PATIENT
  Age: 82 Year
  Sex: Male
  Weight: 99.79 kg

DRUGS (7)
  1. CHOLESTYRAMINE [Suspect]
     Active Substance: CHOLESTYRAMINE
     Indication: Irritable bowel syndrome
     Dosage: 4G DAILY
     Route: 048
     Dates: start: 20210617
  2. NOVOLIN NOS [Concomitant]
     Active Substance: INSULIN HUMAN
  3. glipizide and metformin [Concomitant]
  4. IRON [Concomitant]
     Active Substance: IRON
  5. FINASTERIDE [Concomitant]
     Active Substance: FINASTERIDE
  6. SIMVASTATIN [Concomitant]
     Active Substance: SIMVASTATIN
  7. MINERALS\VITAMINS [Concomitant]
     Active Substance: MINERALS\VITAMINS

REACTIONS (3)
  - Dysphonia [Recovered/Resolved]
  - Product use in unapproved indication [Not Recovered/Not Resolved]
  - Drug effective for unapproved indication [Not Recovered/Not Resolved]

NARRATIVE: CASE EVENT DATE: 20210617
